FAERS Safety Report 16267907 (Version 3)
Quarter: 2019Q2

REPORT INFORMATION
  Report Type: Report from Study
  Country: CA (occurrence: CA)
  Receive Date: 20190503
  Receipt Date: 20190524
  Transmission Date: 20190711
  Serious: Yes (Hospitalization)
  Sender: FDA-Public Use
  Company Number: CA-BIOGEN-2019BI00731375

PATIENT
  Sex: Male

DRUGS (1)
  1. TYSABRI [Suspect]
     Active Substance: NATALIZUMAB
     Indication: MULTIPLE SCLEROSIS
     Dosage: INFUSED OVER 1 HOUR
     Route: 042
     Dates: start: 20181003

REACTIONS (6)
  - Back pain [Unknown]
  - Mental disorder [Unknown]
  - Hyperaesthesia [Unknown]
  - Constipation [Recovered/Resolved]
  - Peripheral coldness [Unknown]
  - Pain in extremity [Unknown]
